FAERS Safety Report 4405616-4 (Version None)
Quarter: 2004Q3

REPORT INFORMATION
  Report Type: 
  Country: None (occurrence: None)
  Receive Date: 20040723
  Receipt Date: 20031016
  Transmission Date: 20050211
  Serious: No
  Sender: FDA-Public Use
  Company Number: US-GLAXOSMITHKLINE-A0430745A

PATIENT
  Sex: Female

DRUGS (2)
  1. AVANDIA [Suspect]
     Dosage: 2MG TWICE PER DAY
     Route: 048
  2. METFORMIN HCL [Concomitant]
     Dosage: 500MG UNKNOWN
     Route: 065

REACTIONS (2)
  - FAECES DISCOLOURED [None]
  - NAUSEA [None]
